FAERS Safety Report 23592654 (Version 1)
Quarter: 2024Q1

REPORT INFORMATION
  Report Type: Spontaneous
  Country: US (occurrence: US)
  Receive Date: 20240304
  Receipt Date: 20240304
  Transmission Date: 20240410
  Serious: No
  Sender: FDA-Public Use
  Company Number: US-BAYER-2024A026316

PATIENT
  Age: 21 Year
  Sex: Male
  Weight: 117 kg

DRUGS (3)
  1. KOVALTRY [Suspect]
     Active Substance: ANTIHEMOPHILIC FACTOR, HUMAN RECOMBINANT
     Dosage: 4000 UNITS AS NEEDED
     Route: 042
     Dates: start: 202303
  2. KOVALTRY [Suspect]
     Active Substance: ANTIHEMOPHILIC FACTOR, HUMAN RECOMBINANT
     Dosage: 30000 IU INTERNATIONAL UNIT(S)
     Route: 042
     Dates: start: 202303
  3. HEMLIBRA [Concomitant]
     Active Substance: EMICIZUMAB-KXWH

REACTIONS (1)
  - Epistaxis [None]

NARRATIVE: CASE EVENT DATE: 20240214
